FAERS Safety Report 8098705-7 (Version None)
Quarter: 2012Q1

REPORT INFORMATION
  Report Type: 
  Country: None (occurrence: None)
  Receive Date: 20120131
  Receipt Date: 20120125
  Transmission Date: 20120608
  Serious: Yes (Other)
  Sender: FDA-Public Use
  Company Number: BE-JNJFOC-20120111642

PATIENT
  Age: 44 Year
  Sex: Male

DRUGS (1)
  1. IMODIUM AD [Suspect]
     Indication: IRRITABLE BOWEL SYNDROME
     Route: 048

REACTIONS (3)
  - MYOCARDIAL INFARCTION [None]
  - OVERDOSE [None]
  - INTENTIONAL DRUG MISUSE [None]
